FAERS Safety Report 8189580-0 (Version None)
Quarter: 2012Q1

REPORT INFORMATION
  Report Type: 
  Country: None (occurrence: None)
  Receive Date: 20120221
  Receipt Date: 20111111
  Transmission Date: 20120608
  Serious: No
  Sender: FDA-Public Use
  Company Number: 046351

PATIENT
  Age: 7 Year
  Sex: Male

DRUGS (3)
  1. MIDAZOLAM [Concomitant]
  2. PROPOFOL [Concomitant]
  3. LACOSAMIDE [Suspect]
     Indication: CONVULSION
     Dosage: SEE IMAGE

REACTIONS (1)
  - OFF LABEL USE [None]
